FAERS Safety Report 8435359 (Version 2)
Quarter: 2014Q1

REPORT INFORMATION
  Report Type: Spontaneous
  Country: US (occurrence: US)
  Receive Date: 20120301
  Receipt Date: 20140116
  Transmission Date: 20141002
  Serious: Yes (Hospitalization)
  Sender: FDA-Public Use
  Company Number: US-GLAXOSMITHKLINE-A0932379A

PATIENT
  Age: 63 Year
  Sex: Male

DRUGS (1)
  1. AVANDIA [Suspect]
     Indication: DIABETES MELLITUS
     Dosage: 4NG PER DAY
     Route: 048
     Dates: start: 20011106, end: 20080415

REACTIONS (7)
  - Coronary artery disease [Not Recovered/Not Resolved]
  - Myocardial infarction [Unknown]
  - Silent myocardial infarction [Unknown]
  - Dyspnoea [Unknown]
  - Gait disturbance [Unknown]
  - Cardiac disorder [Unknown]
  - Stent placement [Unknown]
